FAERS Safety Report 13893087 (Version 1)
Quarter: 2017Q3

REPORT INFORMATION
  Report Type: Spontaneous
  Country: US (occurrence: US)
  Receive Date: 20170822
  Receipt Date: 20170822
  Transmission Date: 20171127
  Serious: Yes (Other)
  Sender: FDA-Public Use
  Company Number: US-ROCHE-760932

PATIENT
  Age: 67 Year
  Sex: Female
  Weight: 75.8 kg

DRUGS (25)
  1. ACTEMRA [Suspect]
     Active Substance: TOCILIZUMAB
     Route: 042
     Dates: start: 20101117, end: 20101117
  2. PREDNISONE. [Concomitant]
     Active Substance: PREDNISONE
     Dosage: IN THE MORNING
     Route: 065
  3. BUPROPION HCL [Concomitant]
     Active Substance: BUPROPION HYDROCHLORIDE
     Dosage: BUPROPION HCL XL
     Route: 065
  4. NEXIUM [Concomitant]
     Active Substance: ESOMEPRAZOLE MAGNESIUM
     Dosage: IN THE MORNING
     Route: 065
  5. METOPROLOLTARTRAT [Concomitant]
     Dosage: TAKEN IN MORNING AND EVENING.
     Route: 065
  6. LYRICA [Concomitant]
     Active Substance: PREGABALIN
     Dosage: IN THE EVENING
     Route: 065
  7. METHOTREXATE. [Concomitant]
     Active Substance: METHOTREXATE
     Dosage: 6 ML SHOT ONCE A WEEK
     Route: 065
  8. ACTEMRA [Suspect]
     Active Substance: TOCILIZUMAB
     Route: 042
     Dates: start: 20100818, end: 20100818
  9. ACTEMRA [Suspect]
     Active Substance: TOCILIZUMAB
     Route: 042
     Dates: start: 20110217, end: 20110217
  10. SERTRALINE HCL [Concomitant]
     Active Substance: SERTRALINE HYDROCHLORIDE
     Dosage: AT BEDTIME
     Route: 065
  11. MUCINEX DM [Concomitant]
     Active Substance: DEXTROMETHORPHAN HYDROBROMIDE\GUAIFENESIN
     Dosage: IN MORNING AND EVENING.
     Route: 065
  12. ADVAIR HFA [Concomitant]
     Active Substance: FLUTICASONE PROPIONATE\SALMETEROL XINAFOATE
     Dosage: ADVAIR 500/50. I PUFF A DAY
     Route: 065
  13. KLOR-CON M [Concomitant]
     Active Substance: POTASSIUM CHLORIDE
     Dosage: DRUG: KLOR-COM M20
     Route: 065
  14. FUROSEMIDE. [Concomitant]
     Active Substance: FUROSEMIDE
     Dosage: FUROSEMIDE TAB MYL. TAKEN IN THE MORNING.
     Route: 065
  15. LIPITOR [Concomitant]
     Active Substance: ATORVASTATIN CALCIUM
     Dosage: TAKEN AT BED TIME
     Route: 065
  16. ACTEMRA [Suspect]
     Active Substance: TOCILIZUMAB
     Route: 042
     Dates: start: 20100916, end: 20100916
  17. ACTEMRA [Suspect]
     Active Substance: TOCILIZUMAB
     Route: 042
     Dates: start: 20110111, end: 20110111
  18. ACTEMRA [Suspect]
     Active Substance: TOCILIZUMAB
     Route: 042
     Dates: start: 20101013, end: 20101013
  19. ACTEMRA [Suspect]
     Active Substance: TOCILIZUMAB
     Route: 042
     Dates: start: 20101216, end: 20101216
  20. FOLIC ACID. [Concomitant]
     Active Substance: FOLIC ACID
     Route: 065
  21. FORTEO [Concomitant]
     Active Substance: TERIPARATIDE
     Dosage: 600 MCGS/2, 4 ML PEN. 20 MCG SHOT DAILY
     Route: 065
  22. FLUTICASONE PROPIONATE. [Concomitant]
     Active Substance: FLUTICASONE PROPIONATE
     Dosage: NASAL SPRAY
     Route: 050
  23. HYDROCODONE BITARTRATE. [Concomitant]
     Active Substance: HYDROCODONE BITARTRATE
     Dosage: DRUG: HYDROCODONE BIT/APAP. DOSE: 7.5/500M358
     Route: 065
  24. ACTEMRA [Suspect]
     Active Substance: TOCILIZUMAB
     Indication: RHEUMATOID ARTHRITIS
     Route: 042
     Dates: start: 20100722, end: 20100722
  25. NORTRIPTYLINE [Concomitant]
     Active Substance: NORTRIPTYLINE
     Dosage: AT BED TIME
     Route: 065

REACTIONS (2)
  - Throat tightness [Recovered/Resolved]
  - Cough [Recovered/Resolved]

NARRATIVE: CASE EVENT DATE: 20110217
